FAERS Safety Report 20984463 (Version 1)
Quarter: 2022Q2

REPORT INFORMATION
  Report Type: Spontaneous
  Country: US (occurrence: None)
  Receive Date: 20220621
  Receipt Date: 20220621
  Transmission Date: 20220720
  Serious: No
  Sender: FDA-Public Use
  Company Number: US-ROCHE-2833619

PATIENT
  Age: 44 Year
  Sex: Female

DRUGS (26)
  1. XELODA [Suspect]
     Active Substance: CAPECITABINE
     Indication: Breast cancer metastatic
     Dosage: TAKE 1500 MG ORALLY AFTER BREAKFAST AND TAKE 1500 MG AFTER DINNER ON DAYS 1-14 OFF ON DAYS 15-21
     Route: 048
  2. HERCEPTIN [Suspect]
     Active Substance: TRASTUZUMAB
     Indication: Breast cancer metastatic
     Dosage: 378 MG IN NS 250 ML CHEMO INFUSION, 6MG/KG IV ONCE AND LAST RATE 500 ML/HR AT O4/APR/2021 1245, 378
     Route: 041
     Dates: start: 20210407
  3. KADCYLA [Suspect]
     Active Substance: ADO-TRASTUZUMAB EMTANSINE
     Indication: Breast cancer metastatic
     Route: 042
     Dates: start: 20190201, end: 202005
  4. PERJETA [Suspect]
     Active Substance: PERTUZUMAB
     Indication: Breast cancer metastatic
     Route: 042
     Dates: start: 20151123
  5. TUKYSA [Suspect]
     Active Substance: TUCATINIB
     Indication: Breast cancer metastatic
     Route: 048
     Dates: start: 20200617, end: 20210224
  6. TUKYSA [Suspect]
     Active Substance: TUCATINIB
     Route: 048
  7. TUKYSA [Suspect]
     Active Substance: TUCATINIB
     Dosage: 150 MG, TAKE 2 TABLETS (300 MG) ORALLY EVERY 12 HOURS CONSISTENTLY WITH/WITHOUT MEALS.
     Route: 048
  8. ALBUTEROL [Concomitant]
     Active Substance: ALBUTEROL
  9. ALPRAZOLAM [Concomitant]
     Active Substance: ALPRAZOLAM
     Indication: Anxiety
     Dosage: 0.25 MG DOSE
     Route: 048
  10. AMITRIPTYLINE [Concomitant]
     Active Substance: AMITRIPTYLINE
     Dosage: 25 MG TABLET BY MOUTH AT BED TIME FOR 1WEEK THEN TAKE 1 TABLET AT BEDTIME
  11. VITAMIN D3 [Concomitant]
     Active Substance: CHOLECALCIFEROL
     Dosage: TAKE 2000 UNIT CAP CAPSULE BY MOUTH
     Route: 048
  12. BENADRYL [Concomitant]
     Active Substance: DIPHENHYDRAMINE HYDROCHLORIDE
     Dosage: TAKE 1 CAPSULE 1 HOUR BEFORE CT SCAN
  13. EPINEPHRINE [Concomitant]
     Active Substance: EPINEPHRINE
     Route: 030
  14. AROMASIN [Concomitant]
     Active Substance: EXEMESTANE
     Route: 048
     Dates: start: 20190320
  15. PEPCID [Concomitant]
     Active Substance: FAMOTIDINE
     Route: 048
  16. PROZAC [Concomitant]
     Active Substance: FLUOXETINE HYDROCHLORIDE
     Route: 048
  17. LISINOPRIL [Concomitant]
     Active Substance: LISINOPRIL
     Route: 048
  18. IMODIUM [Concomitant]
     Active Substance: LOPERAMIDE HYDROCHLORIDE
     Dosage: TAKE 4 MG (2 CAP) AFTER EACH LOOSE STOOL OR EVERY 4 HOURS.
     Route: 048
  19. CANNABIS SATIVA SUBSP. INDICA TOP [Concomitant]
     Active Substance: CANNABIS SATIVA SUBSP. INDICA TOP
  20. OMEGA-3 FATTY ACIDS [Concomitant]
     Active Substance: OMEGA-3 FATTY ACIDS
     Dosage: 340-10000 MG CAPSULE, TAKE 1 CAP BY MOUTH DAILY.
     Route: 048
  21. ZOFRAN [Concomitant]
     Active Substance: ONDANSETRON HYDROCHLORIDE
     Route: 048
  22. PROTONIX [Concomitant]
     Active Substance: PANTOPRAZOLE SODIUM
     Route: 048
  23. DELTASONE [Concomitant]
     Active Substance: PREDNISONE
     Dosage: TAKE 1 TABLET 13 HOURS, 7 HOURS AND 1 BEFORE CT SCAN OR MRI
     Route: 048
  24. COMPAZINE [Concomitant]
     Active Substance: PROCHLORPERAZINE MALEATE
     Dosage: TAKE 1 TABLET EVERY 6 HOURS AS NEEDED FOR NAUSEA
     Route: 048
  25. ZOMETA [Concomitant]
     Active Substance: ZOLEDRONIC ACID
     Route: 042
  26. KEFLEX [Concomitant]
     Active Substance: CEPHALEXIN
     Route: 048

REACTIONS (4)
  - Headache [Recovering/Resolving]
  - Tremor [Recovering/Resolving]
  - Dysphonia [Unknown]
  - Fatigue [Unknown]

NARRATIVE: CASE EVENT DATE: 20210217
